FAERS Safety Report 8965482 (Version 3)
Quarter: 2014Q3

REPORT INFORMATION
  Report Type: Report from Study
  Country: JP (occurrence: JP)
  Receive Date: 20121213
  Receipt Date: 20140716
  Transmission Date: 20150326
  Serious: Yes (Other)
  Sender: FDA-Public Use
  Company Number: JP-ASTELLAS-2012JP005593

PATIENT
  Age: 35 Year
  Sex: Female

DRUGS (65)
  1. TACROLIMUS. [Suspect]
     Active Substance: TACROLIMUS
     Indication: LUPUS NEPHRITIS
     Route: 048
     Dates: start: 20070713
  2. PREDNISOLONE. [Concomitant]
     Active Substance: PREDNISOLONE
     Route: 048
     Dates: start: 20101105, end: 20111006
  3. TAKEPRON [Concomitant]
     Active Substance: LANSOPRAZOLE
     Indication: PROPHYLAXIS
     Route: 048
     Dates: end: 20081009
  4. MAINTATE [Concomitant]
     Active Substance: BISOPROLOL FUMARATE
     Indication: PRODUCT USED FOR UNKNOWN INDICATION
     Route: 048
  5. MUCOSTA [Concomitant]
     Active Substance: REBAMIPIDE
     Indication: PROPHYLAXIS
     Route: 048
  6. COCARL [Concomitant]
     Active Substance: ACETAMINOPHEN
     Indication: PNEUMONIA BACTERIAL
  7. CRAVIT [Concomitant]
     Active Substance: LEVOFLOXACIN
     Indication: PNEUMONIA BACTERIAL
  8. VEEN-F [Concomitant]
     Indication: PNEUMONIA BACTERIAL
  9. VITAMEDIN                          /00176001/ [Concomitant]
     Indication: UPPER RESPIRATORY TRACT INFLAMMATION
     Route: 041
     Dates: start: 20100124, end: 20100124
  10. GLUCOSE [Concomitant]
     Active Substance: DEXTROSE
     Indication: BRONCHITIS
  11. MUCOSOLVAN [Concomitant]
     Active Substance: AMBROXOL\CLENBUTEROL
     Indication: BRONCHITIS
  12. PREDNISOLONE. [Concomitant]
     Active Substance: PREDNISOLONE
     Indication: LUPUS NEPHRITIS
     Route: 048
     Dates: end: 20100708
  13. NAUZELIN [Concomitant]
     Active Substance: DOMPERIDONE
     Indication: GASTROENTERITIS
     Dosage: UNK UNK, UNKNOWN FREQ.
     Route: 054
     Dates: start: 20090402, end: 20090407
  14. MAGNESIUM OXIDE. [Concomitant]
     Active Substance: MAGNESIUM OXIDE
     Indication: CONSTIPATION
     Route: 048
     Dates: start: 20101105
  15. GLUCOSE [Concomitant]
     Active Substance: DEXTROSE
     Indication: PNEUMONIA BACTERIAL
  16. SEISHOKU [Concomitant]
     Active Substance: SODIUM CHLORIDE
     Indication: UPPER RESPIRATORY TRACT INFLAMMATION
     Route: 041
     Dates: start: 20100124, end: 20100124
  17. HIRUDOID                           /00723701/ [Concomitant]
     Indication: PRODUCT USED FOR UNKNOWN INDICATION
     Dosage: UNK, UNKNOWN FREQ.
     Route: 065
     Dates: start: 20110610, end: 20111208
  18. HIRUDOID                           /00723701/ [Concomitant]
     Indication: PRODUCT USED FOR UNKNOWN INDICATION
     Dosage: UNK, UNKNOWN FREQ.
     Route: 065
     Dates: start: 20110610, end: 20110804
  19. PREDNISOLONE. [Concomitant]
     Active Substance: PREDNISOLONE
     Route: 048
     Dates: start: 20100709, end: 20100902
  20. PREDNISOLONE. [Concomitant]
     Active Substance: PREDNISOLONE
     Route: 048
     Dates: start: 20100903, end: 20101104
  21. COCARL [Concomitant]
     Active Substance: ACETAMINOPHEN
     Indication: UPPER RESPIRATORY TRACT INFLAMMATION
     Route: 048
     Dates: start: 20100125, end: 20100204
  22. PURSENNID                          /00142207/ [Concomitant]
     Active Substance: SENNOSIDES A AND B CALCIUM
     Indication: CONSTIPATION
     Route: 048
     Dates: start: 20101105
  23. CEFZON [Concomitant]
     Active Substance: CEFDINIR
     Indication: BRONCHITIS
  24. CRAVIT [Concomitant]
     Active Substance: LEVOFLOXACIN
     Indication: BRONCHITIS
  25. VEEN-F [Concomitant]
     Indication: UPPER RESPIRATORY TRACT INFLAMMATION
     Route: 041
     Dates: start: 20100124, end: 20100124
  26. VITAMEDIN                          /00176001/ [Concomitant]
     Indication: BRONCHITIS
  27. CEFTRIAXONE. [Concomitant]
     Active Substance: CEFTRIAXONE
     Indication: UPPER RESPIRATORY TRACT INFLAMMATION
     Route: 065
     Dates: start: 20100124, end: 20100125
  28. CEFTRIAXONE. [Concomitant]
     Active Substance: CEFTRIAXONE
     Indication: BRONCHITIS
  29. CEFTRIAXONE. [Concomitant]
     Active Substance: CEFTRIAXONE
     Indication: PNEUMONIA BACTERIAL
  30. ZYLORIC [Concomitant]
     Active Substance: ALLOPURINOL
     Route: 048
     Dates: start: 20100312
  31. TAKEPRON [Concomitant]
     Active Substance: LANSOPRAZOLE
     Route: 048
     Dates: start: 20081010, end: 20100114
  32. COCARL [Concomitant]
     Active Substance: ACETAMINOPHEN
     Indication: GASTROENTERITIS
     Route: 048
     Dates: start: 20090402, end: 20090407
  33. PRIMPERAN [Concomitant]
     Active Substance: METOCLOPRAMIDE HYDROCHLORIDE
     Indication: GASTROENTERITIS
     Dosage: UNK, UNKNOWN FREQ.
     Route: 065
     Dates: start: 20090402, end: 20090402
  34. SEISHOKU [Concomitant]
     Active Substance: SODIUM CHLORIDE
     Indication: PNEUMONIA BACTERIAL
  35. MUCODYNE [Concomitant]
     Active Substance: CARBOCYSTEINE
     Indication: UPPER RESPIRATORY TRACT INFLAMMATION
     Route: 048
     Dates: start: 20100125, end: 20100201
  36. MUCODYNE [Concomitant]
     Active Substance: CARBOCYSTEINE
     Indication: PNEUMONIA BACTERIAL
  37. MUCOSOLVAN [Concomitant]
     Active Substance: AMBROXOL\CLENBUTEROL
     Indication: UPPER RESPIRATORY TRACT INFLAMMATION
     Route: 048
     Dates: start: 20100125, end: 20100201
  38. MUCOSOLVAN [Concomitant]
     Active Substance: AMBROXOL\CLENBUTEROL
     Indication: PNEUMONIA BACTERIAL
  39. ZYLORIC [Concomitant]
     Active Substance: ALLOPURINOL
     Indication: PRODUCT USED FOR UNKNOWN INDICATION
     Route: 048
     Dates: end: 20100311
  40. BAKTAR [Concomitant]
     Active Substance: SULFAMETHOXAZOLE\TRIMETHOPRIM
     Indication: PROPHYLAXIS
     Route: 048
     Dates: end: 20100806
  41. KINDAVATE [Concomitant]
     Indication: ARTHROPOD STING
     Dosage: UNK UNK, UNKNOWN FREQ.
     Route: 061
     Dates: start: 20081205, end: 20090205
  42. NAUZELIN [Concomitant]
     Active Substance: DOMPERIDONE
     Indication: GASTROENTERITIS
     Route: 048
     Dates: start: 20090402, end: 20090407
  43. FOSAMAX [Concomitant]
     Active Substance: ALENDRONATE SODIUM
     Indication: PROPHYLAXIS
     Route: 048
     Dates: start: 20090605, end: 20090910
  44. PARIET [Concomitant]
     Active Substance: RABEPRAZOLE SODIUM
     Indication: OESOPHAGEAL ULCER
     Route: 048
     Dates: start: 20091109
  45. PROPETO [Concomitant]
     Indication: LIP EROSION
     Dosage: UNK, UNKNOWN FREQ.
     Route: 061
     Dates: start: 20101008
  46. PL [Concomitant]
     Active Substance: ACETAMINOPHEN\CAFFEINE\PROMETHAZINE\SALICYLAMIDE
     Indication: BRONCHITIS
  47. SEISHOKU [Concomitant]
     Active Substance: SODIUM CHLORIDE
     Indication: BRONCHITIS
  48. MUCODYNE [Concomitant]
     Active Substance: CARBOCYSTEINE
     Indication: BRONCHITIS
  49. PREDNISOLONE. [Concomitant]
     Active Substance: PREDNISOLONE
     Route: 048
     Dates: start: 20111007, end: 20120126
  50. PREDNISOLONE. [Concomitant]
     Active Substance: PREDNISOLONE
     Route: 048
     Dates: start: 20120127
  51. CELLCEPT [Concomitant]
     Active Substance: MYCOPHENOLATE MOFETIL\MYCOPHENOLATE MOFETIL HYDROCHLORIDE
     Indication: LUPUS NEPHRITIS
     Route: 048
     Dates: end: 20071206
  52. FLAVITAN [Concomitant]
     Active Substance: FLAVIN ADENINE DINUCLEOTIDE
     Indication: STOMATITIS
     Route: 048
     Dates: start: 20100903, end: 20111208
  53. PL [Concomitant]
     Active Substance: ACETAMINOPHEN\CAFFEINE\PROMETHAZINE\SALICYLAMIDE
     Indication: UPPER RESPIRATORY TRACT INFLAMMATION
     Route: 048
     Dates: start: 20100115, end: 20100122
  54. CEFZON [Concomitant]
     Active Substance: CEFDINIR
     Indication: UPPER RESPIRATORY TRACT INFLAMMATION
     Route: 048
     Dates: start: 20100115, end: 20100122
  55. CRAVIT [Concomitant]
     Active Substance: LEVOFLOXACIN
     Indication: UPPER RESPIRATORY TRACT INFLAMMATION
     Route: 048
     Dates: start: 20100124, end: 20100203
  56. VITAMEDIN                          /00176001/ [Concomitant]
     Indication: PNEUMONIA BACTERIAL
  57. GLUCOSE [Concomitant]
     Active Substance: DEXTROSE
     Indication: UPPER RESPIRATORY TRACT INFLAMMATION
     Route: 041
     Dates: start: 20100124, end: 20100125
  58. PROMAC                             /01312301/ [Concomitant]
     Active Substance: NITROFURANTOIN
     Indication: OESOPHAGEAL ULCER
     Route: 048
     Dates: start: 20091109, end: 20091129
  59. PYDOXAL [Concomitant]
     Active Substance: PYRIDOXAL
     Indication: STOMATITIS
     Route: 048
     Dates: start: 20100903, end: 20111208
  60. CELLCEPT [Concomitant]
     Active Substance: MYCOPHENOLATE MOFETIL\MYCOPHENOLATE MOFETIL HYDROCHLORIDE
     Route: 048
     Dates: start: 20071207
  61. COCARL [Concomitant]
     Active Substance: ACETAMINOPHEN
     Indication: BRONCHITIS
  62. SOLITA T                           /07473201/ [Concomitant]
     Indication: GASTROENTERITIS
     Dosage: UNK, UNKNOWN FREQ.
     Route: 065
     Dates: start: 20090402, end: 20090402
  63. PL [Concomitant]
     Active Substance: ACETAMINOPHEN\CAFFEINE\PROMETHAZINE\SALICYLAMIDE
     Indication: PNEUMONIA BACTERIAL
  64. CEFZON [Concomitant]
     Active Substance: CEFDINIR
     Indication: PNEUMONIA BACTERIAL
  65. VEEN-F [Concomitant]
     Indication: BRONCHITIS

REACTIONS (11)
  - Oesophageal ulcer [Recovering/Resolving]
  - Constipation [Recovering/Resolving]
  - Lip erosion [Recovering/Resolving]
  - Asteatosis [Recovering/Resolving]
  - Stomatitis [Recovering/Resolving]
  - Bronchitis [Recovered/Resolved]
  - Arthropod sting [Recovered/Resolved]
  - Gastroenteritis [Recovered/Resolved]
  - Pneumonia bacterial [Recovered/Resolved]
  - Arthropod sting [Recovering/Resolving]
  - Upper respiratory tract inflammation [Recovered/Resolved]

NARRATIVE: CASE EVENT DATE: 20081205
